FAERS Safety Report 17528204 (Version 7)
Quarter: 2021Q3

REPORT INFORMATION
  Report Type: Report from Study
  Country: HU (occurrence: HU)
  Receive Date: 20200311
  Receipt Date: 20210820
  Transmission Date: 20211014
  Serious: No
  Sender: FDA-Public Use
  Company Number: HU-ROCHE-2561095

PATIENT
  Age: 72 Year
  Sex: Male
  Weight: 104 kg

DRUGS (8)
  1. COVEREX [Concomitant]
     Active Substance: PERINDOPRIL ERBUMINE
     Dates: start: 2011
  2. ATEZOLIZUMAB. [Suspect]
     Active Substance: ATEZOLIZUMAB
     Indication: TRANSITIONAL CELL CARCINOMA METASTATIC
     Dosage: LAST INFUSION OF ATEZOLIZUMAB: 17/DEC/2019
     Route: 042
     Dates: start: 20171031
  3. MILURIT [Concomitant]
     Active Substance: ALLOPURINOL
     Route: 048
     Dates: start: 2010
  4. ADIMET [Concomitant]
     Active Substance: METFORMIN HYDROCHLORIDE
     Route: 048
     Dates: start: 20200109
  5. AMLODIPINE [Concomitant]
     Active Substance: AMLODIPINE BESYLATE
     Route: 048
     Dates: start: 2011
  6. ROSUVASTATIN. [Concomitant]
     Active Substance: ROSUVASTATIN
     Indication: BLOOD CHOLESTEROL INCREASED
     Route: 048
     Dates: start: 20191015
  7. CONCOR [Concomitant]
     Active Substance: BISOPROLOL FUMARATE
     Route: 048
     Dates: start: 2011
  8. ADIMET [Concomitant]
     Active Substance: METFORMIN HYDROCHLORIDE
     Indication: DIABETES MELLITUS
     Route: 048
     Dates: start: 2016, end: 20200108

REACTIONS (1)
  - Nephritis [Recovered/Resolved]

NARRATIVE: CASE EVENT DATE: 20200107
